FAERS Safety Report 19072651 (Version 1)
Quarter: 2021Q1

REPORT INFORMATION
  Report Type: Spontaneous
  Country: US (occurrence: US)
  Receive Date: 20210330
  Receipt Date: 20210330
  Transmission Date: 20210420
  Serious: No
  Sender: FDA-Public Use
  Company Number: None

PATIENT
  Age: 90 Year
  Sex: Male
  Weight: 77 kg

DRUGS (11)
  1. EVOLOCUMAB [Suspect]
     Active Substance: EVOLOCUMAB
     Indication: HYPERCHOLESTEROLAEMIA
     Dosage: ?          OTHER FREQUENCY:Q2 WEEKS;?
     Route: 058
     Dates: end: 20210325
  2. ISOSORBIDE MONONITRATE 30MG QD [Concomitant]
  3. METOPROLOL 25MG BID [Concomitant]
  4. VITAMIN D3 1 TAB QD [Concomitant]
  5. COQ10 200MG QD [Concomitant]
  6. ASPIRIN 81MG QD [Concomitant]
  7. APIXABAN 5MG BID [Concomitant]
  8. VALSARTAN 160MG BID [Concomitant]
  9. VITAMIN B12 1 TAB QD [Concomitant]
  10. AMLODIPINE 5MG QD [Concomitant]
  11. OMEGA 3 1200MG BID [Concomitant]

REACTIONS (3)
  - Joint swelling [None]
  - Peripheral swelling [None]
  - Swelling [None]

NARRATIVE: CASE EVENT DATE: 20210329
